FAERS Safety Report 4811102-X (Version None)
Quarter: 2005Q4

REPORT INFORMATION
  Report Type: 
  Country: None (occurrence: None)
  Receive Date: 20051025
  Receipt Date: 20050830
  Transmission Date: 20060501
  Serious: Yes (Hospitalization)
  Sender: FDA-Public Use
  Company Number: PHBS1994US02414

PATIENT
  Age: 40 Year
  Sex: Male

DRUGS (3)
  1. HABITROL [Suspect]
     Indication: TOBACCO ABUSE
     Dosage: 10 MG, QD, TOPICAL
     Route: 061
  2. CIMETIDINE (CIMETIDINE) TABLET [Concomitant]
  3. DEXAMETHASONE [Concomitant]

REACTIONS (6)
  - ASTHENIA [None]
  - CEREBRAL INFARCTION [None]
  - CEREBRAL ISCHAEMIA [None]
  - CEREBROVASCULAR ACCIDENT [None]
  - COGNITIVE DISORDER [None]
  - SOMNOLENCE [None]
